FAERS Safety Report 8431106-8 (Version None)
Quarter: 2012Q2

REPORT INFORMATION
  Report Type: 
  Country: None (occurrence: None)
  Receive Date: 20120612
  Receipt Date: 20120605
  Transmission Date: 20120825
  Serious: Yes (Other)
  Sender: FDA-Public Use
  Company Number: US-FRI-1000031064

PATIENT
  Age: 74 Year
  Sex: Female
  Weight: 48.5 kg

DRUGS (5)
  1. BIAXIN [Suspect]
     Dates: start: 20120501
  2. DALIRESP [Suspect]
     Indication: CHRONIC OBSTRUCTIVE PULMONARY DISEASE
     Dosage: 500 MCG
     Route: 048
     Dates: start: 20120301
  3. ACETAMINOPHEN [Concomitant]
  4. THYROID TAB [Concomitant]
     Indication: HYPOTHYROIDISM
  5. SPIRONOLACTONE [Concomitant]

REACTIONS (4)
  - SKIN CANCER [None]
  - PARAESTHESIA [None]
  - SWELLING FACE [None]
  - NAUSEA [None]
